FAERS Safety Report 7886375-X (Version None)
Quarter: 2011Q4

REPORT INFORMATION
  Report Type: 
  Country: None (occurrence: None)
  Receive Date: 20111102
  Receipt Date: 20110701
  Transmission Date: 20120403
  Serious: No
  Sender: FDA-Public Use
  Company Number: US-AMGEN-USASP2011033762

PATIENT
  Age: 54 Year
  Sex: Female
  Weight: 80.272 kg

DRUGS (9)
  1. FOLIC ACID [Concomitant]
     Dosage: 20 MG, UNK
  2. HYDROXYCHLOROQUINE SULFATE [Concomitant]
     Dosage: 200 MG, UNK
  3. VITAMIN D [Concomitant]
     Dosage: 1000 IU, UNK
  4. NAPROXEN [Concomitant]
     Dosage: 250 MG, UNK
  5. BIOTIN [Concomitant]
     Dosage: 10 MG, UNK
  6. CENTRUM                            /00554501/ [Concomitant]
  7. IBUPROFEN (ADVIL) [Concomitant]
     Dosage: 200 MG, UNK
  8. ENBREL [Suspect]
     Indication: PRODUCT USED FOR UNKNOWN INDICATION
     Dosage: 50 MG, QWK
     Route: 058
  9. METHOTREXATE [Concomitant]
     Dosage: 2.5 MG, UNK

REACTIONS (4)
  - INJECTION SITE ERYTHEMA [None]
  - HERPES ZOSTER [None]
  - INJECTION SITE RASH [None]
  - INJECTION SITE PRURITUS [None]
